FAERS Safety Report 9346572 (Version 1)
Quarter: 2013Q2

REPORT INFORMATION
  Report Type: Spontaneous
  Country: US (occurrence: US)
  Receive Date: 20130613
  Receipt Date: 20130613
  Transmission Date: 20140414
  Serious: Yes (Hospitalization)
  Sender: FDA-Public Use
  Company Number: US-BAYER-2013-071823

PATIENT
  Age: 23 Year
  Sex: Female

DRUGS (10)
  1. YASMIN [Suspect]
  2. KEFLEX [Concomitant]
     Indication: TOOTH ABSCESS
     Dosage: 500 MG, EVERY SIX HOURS
     Dates: start: 20060127
  3. LORTAB [Concomitant]
     Indication: PAIN
     Dosage: 10 EVERY FOUR TO SIX HOURS P.R.N.
     Dates: start: 20060127
  4. MYCELEX TROCHE [Concomitant]
  5. WELLBUTRIN [Concomitant]
     Indication: EX-TOBACCO USER
     Dosage: 150 MG, UNK
  6. NICODERM CQ [Concomitant]
  7. ALBUTEROL [Concomitant]
     Indication: DYSPNOEA
     Dosage: 2 PUFF(S), FOUR HOURS P.R.N.
  8. ZOLOFT [Concomitant]
     Dosage: 50 MG, UNK
  9. MONISTAT [Concomitant]
  10. MONISTAT [Concomitant]

REACTIONS (1)
  - Pulmonary embolism [None]
